FAERS Safety Report 11937052 (Version 2)
Quarter: 2016Q1

REPORT INFORMATION
  Report Type: Report from Study
  Country: US (occurrence: US)
  Receive Date: 20160121
  Receipt Date: 20160127
  Transmission Date: 20160526
  Serious: Yes (Hospitalization, Disabling)
  Sender: FDA-Public Use
  Company Number: US-JNJFOC-20160114661

PATIENT
  Age: 79 Year
  Sex: Female

DRUGS (1)
  1. IMBRUVICA [Suspect]
     Active Substance: IBRUTINIB
     Indication: CHRONIC LYMPHOCYTIC LEUKAEMIA
     Route: 048
     Dates: start: 201509

REACTIONS (7)
  - Cerebral haemorrhage [Unknown]
  - Fall [Unknown]
  - Head injury [Unknown]
  - Post procedural infection [Unknown]
  - Muscular weakness [Recovering/Resolving]
  - Deafness [Unknown]
  - Balance disorder [Recovering/Resolving]

NARRATIVE: CASE EVENT DATE: 201512
